FAERS Safety Report 11090186 (Version 3)
Quarter: 2015Q2

REPORT INFORMATION
  Report Type: Spontaneous
  Country: IT (occurrence: IT)
  Receive Date: 20150505
  Receipt Date: 20150622
  Transmission Date: 20150821
  Serious: Yes (Hospitalization)
  Sender: FDA-Public Use
  Company Number: IT-PFIZER INC-2015147118

PATIENT
  Age: 71 Year
  Sex: Female

DRUGS (4)
  1. SALAZOPYRIN EN [Suspect]
     Active Substance: SULFASALAZINE
     Indication: PSORIATIC ARTHROPATHY
     Dosage: 500 MG, DAILY
     Route: 048
     Dates: start: 20150415, end: 20150425
  2. MODURETIC 5-50 [Concomitant]
     Active Substance: AMILORIDE HYDROCHLORIDE\HYDROCHLOROTHIAZIDE
     Dosage: 1 DF, UNK
     Route: 048
     Dates: start: 20150414, end: 20150425
  3. DELTACORTENE [Concomitant]
     Active Substance: PREDNISONE
     Indication: PSORIATIC ARTHROPATHY
     Dosage: 25 MG, DAILY (IN THE MORNING)
     Route: 048
     Dates: start: 20150415, end: 20150425
  4. ETORICOXIB [Concomitant]
     Active Substance: ETORICOXIB
     Indication: PSORIATIC ARTHROPATHY
     Dosage: 90 MG, UNK
     Route: 048
     Dates: start: 20150414, end: 20150424

REACTIONS (3)
  - Epistaxis [Recovering/Resolving]
  - Thrombocytopenia [Recovering/Resolving]
  - Thrombocytopenic purpura [Recovering/Resolving]

NARRATIVE: CASE EVENT DATE: 20150425
